FAERS Safety Report 10053229 (Version 1)
Quarter: 2014Q2

REPORT INFORMATION
  Report Type: Spontaneous
  Country: FR (occurrence: FR)
  Receive Date: 20140402
  Receipt Date: 20140402
  Transmission Date: 20141212
  Serious: Yes (Hospitalization, Congenital Anomaly)
  Sender: FDA-Public Use
  Company Number: FR-GLAXOSMITHKLINE-B0979801A

PATIENT
  Age: 0 Day
  Sex: Female
  Weight: 2.7 kg

DRUGS (5)
  1. LAMICTAL [Suspect]
     Indication: EPILEPSY
     Route: 064
     Dates: end: 20131202
  2. URBANYL [Suspect]
     Indication: EPILEPSY
     Route: 064
     Dates: end: 20131202
  3. EPITOMAX [Suspect]
     Indication: EPILEPSY
     Route: 064
     Dates: end: 20131202
  4. KEPPRA [Suspect]
     Indication: EPILEPSY
     Route: 064
     Dates: end: 20131202
  5. VOGALENE [Concomitant]
     Indication: VOMITING
     Route: 065

REACTIONS (7)
  - Microcephaly [Not Recovered/Not Resolved]
  - Foetal malnutrition [Not Recovered/Not Resolved]
  - Congenital eye disorder [Not Recovered/Not Resolved]
  - Congenital hearing disorder [Not Recovered/Not Resolved]
  - Ill-defined disorder [Unknown]
  - Strabismus congenital [Unknown]
  - Foetal exposure during pregnancy [Unknown]
